FAERS Safety Report 6054189-1 (Version None)
Quarter: 2009Q1

REPORT INFORMATION
  Report Type: 
  Country: None (occurrence: None)
  Receive Date: 20090127
  Receipt Date: 20090115
  Transmission Date: 20090719
  Serious: Yes (Other)
  Sender: FDA-Public Use
  Company Number: FR-ELI_LILLY_AND_COMPANY-FR200810005763

PATIENT
  Age: 58 Year
  Sex: Male
  Weight: 93 kg

DRUGS (9)
  1. BYETTA [Suspect]
     Indication: TYPE 2 DIABETES MELLITUS
     Dosage: 5 UG, 2/D
     Route: 058
     Dates: start: 20080801, end: 20080901
  2. BYETTA [Suspect]
     Dosage: 10 UG, 2/D
     Route: 058
     Dates: start: 20080901, end: 20080901
  3. METFORMIN HCL [Concomitant]
     Indication: TYPE 2 DIABETES MELLITUS
     Dosage: 1000 MG, 2/D
     Route: 048
  4. SULFAMIDE [Concomitant]
     Dosage: UNK, UNKNOWN
     Route: 065
  5. NOVONORM [Concomitant]
     Indication: TYPE 2 DIABETES MELLITUS
     Dosage: 2 MG, 2/D
     Route: 048
     Dates: end: 20080801
  6. LANTUS [Concomitant]
     Indication: TYPE 2 DIABETES MELLITUS
     Dosage: 46 IU, EACH EVENING
     Route: 058
     Dates: end: 20080801
  7. APIDRA [Concomitant]
     Indication: TYPE 2 DIABETES MELLITUS
     Dosage: 8 IU, EACH MORNING
     Route: 058
     Dates: end: 20080801
  8. INEGY [Concomitant]
     Dosage: 1 D/F, DAILY (1/D)
     Route: 048
  9. LEVOTHYROX [Concomitant]
     Dosage: 75 UG, DAILY (1/D)
     Route: 048

REACTIONS (2)
  - HYPERGLYCAEMIA [None]
  - WEIGHT DECREASED [None]
